FAERS Safety Report 5698007-X (Version None)
Quarter: 2008Q2

REPORT INFORMATION
  Report Type: 
  Country: None (occurrence: None)
  Receive Date: 20080408
  Receipt Date: 20080327
  Transmission Date: 20081010
  Serious: Yes (Death)
  Sender: FDA-Public Use
  Company Number: FI-ELI_LILLY_AND_COMPANY-FI200803006337

PATIENT
  Sex: Female

DRUGS (1)
  1. HUMALOG [Suspect]
     Dosage: 2100 IU, UNK
     Route: 058
     Dates: start: 20080301

REACTIONS (2)
  - COMPLETED SUICIDE [None]
  - INTENTIONAL OVERDOSE [None]
